FAERS Safety Report 6262737-1 (Version None)
Quarter: 2009Q3

REPORT INFORMATION
  Report Type: 
  Country: None (occurrence: None)
  Receive Date: 20090708
  Receipt Date: 20090630
  Transmission Date: 20100115
  Serious: Yes (Death)
  Sender: FDA-Public Use
  Company Number: 2008AL004304

PATIENT
  Age: 73 Year
  Sex: Male
  Weight: 49.4421 kg

DRUGS (5)
  1. DIGOXIN [Suspect]
     Indication: CARDIAC DISORDER
     Dosage: 0.125MG, PO
     Route: 048
     Dates: start: 20080122, end: 20080414
  2. DEMADEX [Concomitant]
  3. COREG [Concomitant]
  4. SYNTHROID [Concomitant]
  5. PROSCAR [Concomitant]

REACTIONS (3)
  - CARDIAC FAILURE CHRONIC [None]
  - CARDIOACTIVE DRUG LEVEL INCREASED [None]
  - CONDITION AGGRAVATED [None]
